FAERS Safety Report 18581957 (Version 2)
Quarter: 2021Q1

REPORT INFORMATION
  Report Type: Report from Study
  Country: TR (occurrence: TR)
  Receive Date: 20201204
  Receipt Date: 20210108
  Transmission Date: 20210419
  Serious: Yes (Death, Hospitalization, Other)
  Sender: FDA-Public Use
  Company Number: TR-BIOGEN-2020BI00953929

PATIENT
  Age: 1 Year
  Weight: 5 kg

DRUGS (1)
  1. SPINRAZA [Suspect]
     Active Substance: NUSINERSEN
     Indication: SPINAL MUSCULAR ATROPHY
     Dosage: 2 TOTAL DOSES
     Route: 065
     Dates: end: 20201110

REACTIONS (2)
  - Respiratory failure [Unknown]
  - Sepsis [Fatal]

NARRATIVE: CASE EVENT DATE: 20201128
